FAERS Safety Report 5889269-4 (Version None)
Quarter: 2008Q3

REPORT INFORMATION
  Report Type: 
  Country: None (occurrence: None)
  Receive Date: 20080919
  Receipt Date: 20080908
  Transmission Date: 20090109
  Serious: Yes (Other)
  Sender: FDA-Public Use
  Company Number: EE-ROCHE-585432

PATIENT
  Sex: Female
  Weight: 66 kg

DRUGS (2)
  1. ROACCUTANE [Suspect]
     Indication: ACNE CONGLOBATA
     Route: 048
     Dates: start: 20071026, end: 20080224
  2. ROACCUTANE [Suspect]
     Route: 048
     Dates: start: 20080225, end: 20080510

REACTIONS (3)
  - BALANCE DISORDER [None]
  - PHOTOPHOBIA [None]
  - VISION BLURRED [None]
